FAERS Safety Report 22747011 (Version 26)
Quarter: 2024Q2

REPORT INFORMATION
  Report Type: Spontaneous
  Country: GB (occurrence: GB)
  Receive Date: 20230725
  Receipt Date: 20240603
  Transmission Date: 20240716
  Serious: Yes (Hospitalization)
  Sender: FDA-Public Use
  Company Number: GB-002147023-NVSC2023GB152984

PATIENT
  Age: 48 Year
  Sex: Female
  Weight: 49.8 kg

DRUGS (24)
  1. FLUOROURACIL [Suspect]
     Active Substance: FLUOROURACIL
     Indication: Colorectal cancer metastatic
     Dosage: 600 MG
     Route: 040
     Dates: start: 20230405
  2. FLUOROURACIL [Suspect]
     Active Substance: FLUOROURACIL
     Dosage: UNK
     Route: 065
  3. LEUCOVORIN CALCIUM [Suspect]
     Active Substance: LEUCOVORIN CALCIUM
     Indication: Colorectal cancer metastatic
     Route: 040
     Dates: start: 20230405
  4. ZOPICLONE [Suspect]
     Active Substance: ZOPICLONE
     Indication: Insomnia
     Route: 065
     Dates: start: 20230523
  5. OXALIPLATIN [Suspect]
     Active Substance: OXALIPLATIN
     Indication: Colorectal cancer metastatic
     Route: 042
     Dates: start: 20230405
  6. OXALIPLATIN [Suspect]
     Active Substance: OXALIPLATIN
     Route: 065
     Dates: start: 20230405
  7. OXALIPLATIN [Suspect]
     Active Substance: OXALIPLATIN
     Route: 040
     Dates: start: 20230405
  8. OXALIPLATIN [Suspect]
     Active Substance: OXALIPLATIN
     Route: 040
     Dates: start: 20230405
  9. OXALIPLATIN [Suspect]
     Active Substance: OXALIPLATIN
     Route: 040
  10. OXALIPLATIN [Suspect]
     Active Substance: OXALIPLATIN
     Route: 040
  11. OXALIPLATIN [Suspect]
     Active Substance: OXALIPLATIN
     Route: 042
     Dates: start: 20230405
  12. OXALIPLATIN [Suspect]
     Active Substance: OXALIPLATIN
     Route: 042
     Dates: start: 20230405
  13. OXALIPLATIN [Suspect]
     Active Substance: OXALIPLATIN
     Route: 042
     Dates: start: 20230405
  14. OXALIPLATIN [Suspect]
     Active Substance: OXALIPLATIN
     Route: 065
  15. OXALIPLATIN [Suspect]
     Active Substance: OXALIPLATIN
     Route: 065
  16. BEVACIZUMAB [Suspect]
     Active Substance: BEVACIZUMAB
     Indication: Colorectal cancer metastatic
     Route: 042
     Dates: start: 20230405
  17. LEUCOVORIN [Suspect]
     Active Substance: LEUCOVORIN\LEUCOVORIN CALCIUM
     Indication: Colorectal cancer metastatic
     Route: 040
     Dates: start: 20230405
  18. LEUCOVORIN [Suspect]
     Active Substance: LEUCOVORIN\LEUCOVORIN CALCIUM
     Route: 042
     Dates: start: 20230405
  19. BENZYDAMINE [Concomitant]
     Active Substance: BENZYDAMINE
     Indication: Stomatitis
     Dosage: 0.15 %
     Route: 048
     Dates: start: 20230605
  20. MORPHINE SULFATE [Concomitant]
     Active Substance: MORPHINE SULFATE
     Indication: Abdominal pain lower
     Dosage: UNK
     Route: 065
     Dates: start: 20230502
  21. XARELTO [Concomitant]
     Active Substance: RIVAROXABAN
     Indication: Deep vein thrombosis
     Route: 065
     Dates: start: 20230608
  22. XARELTO [Concomitant]
     Active Substance: RIVAROXABAN
     Indication: Pulmonary embolism
     Dosage: UNK
     Route: 065
  23. ZOPICLONE [Concomitant]
     Active Substance: ZOPICLONE
     Indication: Insomnia
     Dosage: UNK
     Route: 065
     Dates: start: 20230523
  24. BENZYDAMINE HYDROCHLORIDE [Concomitant]
     Active Substance: BENZYDAMINE HYDROCHLORIDE
     Indication: Stomatitis

REACTIONS (4)
  - Malignant neoplasm progression [Unknown]
  - Ascites [Recovering/Resolving]
  - Colorectal cancer metastatic [Unknown]
  - Condition aggravated [Unknown]

NARRATIVE: CASE EVENT DATE: 20230630
